FAERS Safety Report 13401365 (Version 1)
Quarter: 2017Q2

REPORT INFORMATION
  Report Type: Spontaneous
  Country: FR (occurrence: FR)
  Receive Date: 20170404
  Receipt Date: 20170404
  Transmission Date: 20170830
  Serious: Yes (Other)
  Sender: FDA-Public Use
  Company Number: FR-009507513-1703FRA014657

PATIENT
  Age: 69 Year
  Sex: Female

DRUGS (6)
  1. TRIATEC (RAMIPRIL) [Concomitant]
     Active Substance: RAMIPRIL
  2. STILNOX [Concomitant]
     Active Substance: ZOLPIDEM TARTRATE
  3. KEYTRUDA [Suspect]
     Active Substance: PEMBROLIZUMAB
     Dosage: 0.0714 INFUSION (1 INFUSION, EVERY 2 WEEKS)
     Route: 042
     Dates: start: 20161207, end: 20170324
  4. HYDROCORTISONE. [Concomitant]
     Active Substance: HYDROCORTISONE
  5. KEPPRA [Concomitant]
     Active Substance: LEVETIRACETAM
  6. EUPANTOL [Concomitant]
     Active Substance: PANTOPRAZOLE SODIUM

REACTIONS (1)
  - Hyperbilirubinaemia [Unknown]

NARRATIVE: CASE EVENT DATE: 20170320
